FAERS Safety Report 17965490 (Version 1)
Quarter: 2020Q2

REPORT INFORMATION
  Report Type: Report from Study
  Country: None (occurrence: IT)
  Receive Date: 20200630
  Receipt Date: 20200630
  Transmission Date: 20200714
  Serious: Yes (Hospitalization)
  Sender: FDA-Public Use
  Company Number: IT-ABBVIE-20P-083-3460187-00

PATIENT
  Age: 68 Year
  Sex: Female
  Weight: 63 kg

DRUGS (3)
  1. BISOPROLOL [Concomitant]
     Active Substance: BISOPROLOL
     Indication: HYPERTENSION
     Route: 048
     Dates: start: 20190722
  2. LIXIANA [Concomitant]
     Active Substance: EDOXABAN TOSYLATE
     Indication: ANTICOAGULANT THERAPY
     Route: 048
     Dates: start: 20200526
  3. IBRUTINIB [Suspect]
     Active Substance: IBRUTINIB
     Indication: MANTLE CELL LYMPHOMA
     Route: 048
     Dates: start: 20190722, end: 20200623

REACTIONS (1)
  - Gingival bleeding [Recovered/Resolved]

NARRATIVE: CASE EVENT DATE: 20200623
